FAERS Safety Report 5584498-1 (Version None)
Quarter: 2008Q1

REPORT INFORMATION
  Report Type: 
  Country: None (occurrence: None)
  Receive Date: 20080103
  Receipt Date: 20071221
  Transmission Date: 20080703
  Serious: Yes (Life-Threatening)
  Sender: FDA-Public Use
  Company Number: DSJ-2007-06105

PATIENT
  Age: 40 Year
  Sex: Male
  Weight: 80 kg

DRUGS (9)
  1. OLMESARTAN MEDOXOMIL [Suspect]
     Indication: HYPERTENSION
     Dosage: 30 MG (1 IN 1 D); PER ORAL
     Route: 048
     Dates: start: 20070407, end: 20070421
  2. ENALAPRIL MALEATE [Suspect]
     Indication: HYPERTENSION
     Dosage: 5 MG (1 IN 1 D) PER ORAL
     Route: 048
     Dates: start: 20070407, end: 20070421
  3. ADALAT [Concomitant]
  4. CARVEDILOL [Concomitant]
  5. ADALAT CC [Concomitant]
  6. LIVALO                (TABLET) [Concomitant]
  7. FAMOTIDINE [Concomitant]
  8. ITOROL                     (ISOSORBIDE MONONITRAATE) [Concomitant]
  9. DOXAZOSIN MESYLATE [Concomitant]

REACTIONS (1)
  - RENAL IMPAIRMENT [None]
